FAERS Safety Report 6382515-2 (Version None)
Quarter: 2009Q3

REPORT INFORMATION
  Report Type: 
  Country: None (occurrence: None)
  Receive Date: 20090930
  Receipt Date: 20090922
  Transmission Date: 20100115
  Serious: Yes (Other)
  Sender: FDA-Public Use
  Company Number: BR-BAYER-200922124LA

PATIENT
  Age: 40 Year
  Sex: Male

DRUGS (3)
  1. BETAFERON [Suspect]
     Indication: MULTIPLE SCLEROSIS
     Dosage: BETAJECT
     Route: 058
     Dates: start: 20060101, end: 20090801
  2. BETAFERON [Suspect]
     Dosage: BETAJECT
     Route: 058
     Dates: start: 20090901
  3. AZATIOPRIN [Concomitant]
     Indication: SCLERODERMA
     Route: 048
     Dates: start: 20090501, end: 20090801

REACTIONS (8)
  - ARTHRALGIA [None]
  - BALANCE DISORDER [None]
  - DIPLOPIA [None]
  - LEUKOPENIA [None]
  - MUSCLE SPASTICITY [None]
  - MYALGIA [None]
  - SENSORY LOSS [None]
  - TINNITUS [None]
